FAERS Safety Report 14828275 (Version 2)
Quarter: 2018Q2

REPORT INFORMATION
  Report Type: Report from Study
  Country: US (occurrence: US)
  Receive Date: 20180430
  Receipt Date: 20180514
  Transmission Date: 20180711
  Serious: Yes (Hospitalization)
  Sender: FDA-Public Use
  Company Number: US-JNJFOC-20180434455

PATIENT
  Sex: Male

DRUGS (16)
  1. NOVOLOG [Concomitant]
     Active Substance: INSULIN ASPART
  2. SIMVASTATIN. [Concomitant]
     Active Substance: SIMVASTATIN
  3. ASMANEX [Concomitant]
     Active Substance: MOMETASONE FUROATE
  4. ASPIRIN. [Concomitant]
     Active Substance: ASPIRIN
  5. IMBRUVICA [Suspect]
     Active Substance: IBRUTINIB
     Indication: CHRONIC LYMPHOCYTIC LEUKAEMIA
     Route: 048
     Dates: start: 20180402
  6. IMBRUVICA [Concomitant]
     Active Substance: IBRUTINIB
     Indication: CHRONIC LYMPHOCYTIC LEUKAEMIA
     Dosage: 420 MG, QD
     Route: 048
     Dates: start: 20171009, end: 20180401
  7. FOLIC ACID. [Concomitant]
     Active Substance: FOLIC ACID
  8. JANUVIA [Concomitant]
     Active Substance: SITAGLIPTIN PHOSPHATE
  9. IRON [Concomitant]
     Active Substance: IRON
  10. TOPROL XL [Concomitant]
     Active Substance: METOPROLOL SUCCINATE
  11. LOSARTAN. [Concomitant]
     Active Substance: LOSARTAN
  12. TRESIBA [Concomitant]
     Active Substance: INSULIN DEGLUDEC
  13. ACYCLOVIR. [Concomitant]
     Active Substance: ACYCLOVIR
  14. LEXAPRO [Concomitant]
     Active Substance: ESCITALOPRAM OXALATE
  15. CLARITIN [Concomitant]
     Active Substance: LORATADINE
  16. PIOGLITAZONE. [Concomitant]
     Active Substance: PIOGLITAZONE

REACTIONS (5)
  - Blood glucose decreased [Not Recovered/Not Resolved]
  - Fall [Not Recovered/Not Resolved]
  - Spinal fracture [Unknown]
  - Hypotension [Not Recovered/Not Resolved]
  - Blood potassium decreased [Not Recovered/Not Resolved]
